FAERS Safety Report 17290346 (Version 5)
Quarter: 2020Q1

REPORT INFORMATION
  Report Type: Spontaneous
  Country: CA (occurrence: CA)
  Receive Date: 20200121
  Receipt Date: 20200330
  Transmission Date: 20200409
  Serious: Yes (Other)
  Sender: FDA-Public Use
  Company Number: CA-ROCHE-2465637

PATIENT
  Age: 70 Year
  Sex: Female

DRUGS (17)
  1. XOLAIR [Suspect]
     Active Substance: OMALIZUMAB
     Route: 058
     Dates: start: 20180530
  2. SYNTHROID [Concomitant]
     Active Substance: LEVOTHYROXINE SODIUM
     Indication: HYPOTHYROIDISM
     Route: 048
     Dates: start: 20171121, end: 20180120
  3. XOLAIR [Suspect]
     Active Substance: OMALIZUMAB
     Route: 058
     Dates: start: 20190206
  4. PREDNISONE. [Concomitant]
     Active Substance: PREDNISONE
     Route: 065
     Dates: start: 20190612
  5. XOLAIR [Suspect]
     Active Substance: OMALIZUMAB
     Route: 058
     Dates: start: 20180822
  6. XOLAIR [Suspect]
     Active Substance: OMALIZUMAB
     Route: 058
     Dates: start: 20190109
  7. PREDNISONE. [Concomitant]
     Active Substance: PREDNISONE
     Indication: PRODUCT USED FOR UNKNOWN INDICATION
     Route: 048
     Dates: start: 20170727
  8. XOLAIR [Suspect]
     Active Substance: OMALIZUMAB
     Indication: CHRONIC SPONTANEOUS URTICARIA
     Route: 058
     Dates: start: 20180404
  9. XOLAIR [Suspect]
     Active Substance: OMALIZUMAB
     Route: 058
     Dates: start: 20190501
  10. XOLAIR [Suspect]
     Active Substance: OMALIZUMAB
     Route: 058
     Dates: start: 20180502
  11. XOLAIR [Suspect]
     Active Substance: OMALIZUMAB
     Route: 058
     Dates: start: 20190611
  12. REACTINE [CETIRIZINE HYDROCHLORIDE] [Concomitant]
     Active Substance: CETIRIZINE HYDROCHLORIDE
     Indication: PRODUCT USED FOR UNKNOWN INDICATION
     Dosage: UNK
     Route: 065
     Dates: start: 20170717
  13. XOLAIR [Suspect]
     Active Substance: OMALIZUMAB
     Route: 058
     Dates: start: 20180725
  14. XOLAIR [Suspect]
     Active Substance: OMALIZUMAB
     Route: 058
     Dates: start: 20190903
  15. XOLAIR [Suspect]
     Active Substance: OMALIZUMAB
     Route: 058
     Dates: start: 20181212
  16. PREDNISONE. [Concomitant]
     Active Substance: PREDNISONE
     Route: 065
  17. CETIRIZINE [Concomitant]
     Active Substance: CETIRIZINE HYDROCHLORIDE
     Indication: PRODUCT USED FOR UNKNOWN INDICATION
     Dosage: UNK
     Route: 065
     Dates: end: 20191204

REACTIONS (31)
  - Chondrosarcoma [Unknown]
  - Dysgeusia [Recovered/Resolved]
  - Dyspnoea [Unknown]
  - Paraesthesia [Not Recovered/Not Resolved]
  - Blood pressure systolic increased [Not Recovered/Not Resolved]
  - Ocular hyperaemia [Unknown]
  - Hypersensitivity [Recovering/Resolving]
  - Sinusitis [Recovered/Resolved]
  - Hypoaesthesia [Unknown]
  - Skin irritation [Unknown]
  - Pulmonary mass [Unknown]
  - Skin plaque [Unknown]
  - Pruritus [Unknown]
  - Lip swelling [Recovering/Resolving]
  - Cushingoid [Unknown]
  - Malaise [Recovered/Resolved]
  - Urticaria [Not Recovered/Not Resolved]
  - Pulmonary oedema [Unknown]
  - Angioedema [Not Recovered/Not Resolved]
  - Eye swelling [Recovering/Resolving]
  - Paraesthesia oral [Recovering/Resolving]
  - Lung adenocarcinoma [Unknown]
  - Tooth infection [Unknown]
  - Erythema [Recovered/Resolved]
  - Fatigue [Unknown]
  - Sunburn [Unknown]
  - Cough [Unknown]
  - Metastatic lymphoma [Unknown]
  - Pneumothorax [Unknown]
  - Toothache [Not Recovered/Not Resolved]
  - Nasal mucosal disorder [Unknown]

NARRATIVE: CASE EVENT DATE: 20180404
